FAERS Safety Report 8951623 (Version 1)
Quarter: 2012Q4

REPORT INFORMATION
  Report Type: 
  Country: KR (occurrence: KR)
  Receive Date: 20121204
  Receipt Date: 20121204
  Transmission Date: 20130627
  Serious: Yes (Hospitalization)
  Sender: FDA-Public Use
  Company Number: KR-ROCHE-1164020

PATIENT
  Age: 59 Year
  Sex: Female

DRUGS (1)
  1. BONVIVA [Suspect]
     Indication: OSTEOPOROSIS
     Route: 050
     Dates: start: 20121202, end: 20121202

REACTIONS (3)
  - Chest pain [Unknown]
  - Back pain [Unknown]
  - Dyspnoea [Unknown]
